FAERS Safety Report 22592401 (Version 6)
Quarter: 2024Q1

REPORT INFORMATION
  Report Type: Report from Study
  Country: US (occurrence: US)
  Receive Date: 20230613
  Receipt Date: 20240306
  Transmission Date: 20240409
  Serious: No
  Sender: FDA-Public Use
  Company Number: US-ACADIA PHARMACEUTICALS INC.-ACA-2023-TRF-001967

PATIENT
  Age: 22 Year
  Sex: Female

DRUGS (36)
  1. DAYBUE [Suspect]
     Active Substance: TROFINETIDE
     Indication: Rett syndrome
     Dosage: 10 MILLILITER, BID VIA G TUBE FOR 7 DAYS
     Dates: start: 20230515
  2. DAYBUE [Suspect]
     Active Substance: TROFINETIDE
     Dosage: 15 MILLILITER, BID, VIA G TUBE
  3. DAYBUE [Suspect]
     Active Substance: TROFINETIDE
     Dosage: 20 MILLILITER, BID VIA G TUBE
  4. DAYBUE [Suspect]
     Active Substance: TROFINETIDE
     Dosage: 15 MILLILITER, BID, VIA G TUBE
     Dates: start: 20230602
  5. DAYBUE [Suspect]
     Active Substance: TROFINETIDE
     Dosage: 30 MILLILITER, BID, VIA G TUBE
  6. DAYBUE [Suspect]
     Active Substance: TROFINETIDE
     Dosage: 40 MILLILITER, BID, VIA G TUBE
  7. DAYBUE [Suspect]
     Active Substance: TROFINETIDE
     Dosage: 120 ML VIA G-TUBE
     Dates: start: 20230818, end: 20230818
  8. DAYBUE [Suspect]
     Active Substance: TROFINETIDE
     Dosage: 40 MILLILITER, BID
  9. DEXTRIN\WHEAT [Suspect]
     Active Substance: ICODEXTRIN\WHEAT
  10. ACYCLOVIR [Concomitant]
     Active Substance: ACYCLOVIR
  11. ALBUTEROL [Concomitant]
     Active Substance: ALBUTEROL
  12. AZELASTINE [Concomitant]
     Active Substance: AZELASTINE\AZELASTINE HYDROCHLORIDE
  13. CULTURELLE [Concomitant]
     Active Substance: LACTOBACILLUS RHAMNOSUS
  14. VITAMIN D3 [Concomitant]
     Active Substance: CHOLECALCIFEROL
  15. FLEET ENEMA [Concomitant]
     Active Substance: SODIUM PHOSPHATE, DIBASIC\SODIUM PHOSPHATE, MONOBASIC
  16. FLUTICASONE [Concomitant]
     Active Substance: FLUTICASONE
  17. GABAPENTIN [Concomitant]
     Active Substance: GABAPENTIN
  18. IBUPROFEN [Concomitant]
     Active Substance: IBUPROFEN
  19. KEPPRA [Concomitant]
     Active Substance: LEVETIRACETAM
  20. LOPERAMIDE [Concomitant]
     Active Substance: LOPERAMIDE
  21. METRONIDAZOLE [Concomitant]
     Active Substance: METRONIDAZOLE
  22. MIRALAX [Concomitant]
     Active Substance: POLYETHYLENE GLYCOL 3350
  23. MUPIROCIN [Concomitant]
     Active Substance: MUPIROCIN
  24. CALCIUM CARBONATE [Concomitant]
     Active Substance: CALCIUM CARBONATE
  25. CALCIUM [Concomitant]
     Active Substance: CALCIUM
  26. PREVACID [Concomitant]
     Active Substance: LANSOPRAZOLE
  27. PULMICORT TURBUHALER [Concomitant]
     Active Substance: BUDESONIDE
  28. SCOPOLAMINE [Concomitant]
     Active Substance: SCOPOLAMINE
  29. SENNA LEAF [Concomitant]
     Active Substance: SENNA LEAF
  30. SIMETHICONE (DIMETHICONE) [Concomitant]
     Active Substance: DIMETHICONE
  31. SINGULAIR [Concomitant]
     Active Substance: MONTELUKAST SODIUM
  32. TYLENOL [Concomitant]
     Active Substance: ACETAMINOPHEN
  33. VALTOCO [Concomitant]
     Active Substance: DIAZEPAM
  34. XYZAL [Concomitant]
     Active Substance: LEVOCETIRIZINE DIHYDROCHLORIDE
  35. KCL [Concomitant]
     Active Substance: POTASSIUM CHLORIDE
  36. POLY VI SOL [VITAMINS NOS] [Concomitant]

REACTIONS (17)
  - Screaming [Recovered/Resolved]
  - Flatulence [Not Recovered/Not Resolved]
  - Aerophagia [Not Recovered/Not Resolved]
  - Crying [Recovered/Resolved]
  - Drug ineffective [Not Recovered/Not Resolved]
  - Constipation [Not Recovered/Not Resolved]
  - Flatulence [Not Recovered/Not Resolved]
  - Abdominal distension [Not Recovered/Not Resolved]
  - Urinary tract infection [Not Recovered/Not Resolved]
  - Fungal infection [Not Recovered/Not Resolved]
  - Moaning [Unknown]
  - Prescribed underdose [Unknown]
  - Diarrhoea [Recovered/Resolved]
  - Diarrhoea [Not Recovered/Not Resolved]
  - Diarrhoea [Recovered/Resolved]
  - Diarrhoea [Not Recovered/Not Resolved]
  - Accidental overdose [Recovered/Resolved]

NARRATIVE: CASE EVENT DATE: 20230515
